FAERS Safety Report 5642678-0 (Version None)
Quarter: 2008Q1

REPORT INFORMATION
  Report Type: 
  Country: None (occurrence: None)
  Receive Date: 20080226
  Receipt Date: 20080215
  Transmission Date: 20080703
  Serious: Yes (Life-Threatening)
  Sender: FDA-Public Use
  Company Number: E2020-02322-SPO-PT

PATIENT
  Sex: Female

DRUGS (2)
  1. ARICEPT [Suspect]
     Dosage: ORAL
     Route: 048
  2. UNSPECIFIED ANAESTHESTIC (ANAESTHETICS) [Concomitant]

REACTIONS (1)
  - CARDIAC ARREST [None]
